FAERS Safety Report 6768851-6 (Version None)
Quarter: 2010Q2

REPORT INFORMATION
  Report Type: 
  Country: None (occurrence: None)
  Receive Date: 20100611
  Receipt Date: 20100526
  Transmission Date: 20101027
  Serious: Yes (Other)
  Sender: FDA-Public Use
  Company Number: DSA_33495_2009

PATIENT
  Age: 82 Year
  Sex: Female

DRUGS (4)
  1. TILDIEM (TILDIEM SLOW RELEASE DILTIAZEM HYDROCHLORIDE) (NOT SPECIFIED) [Suspect]
     Indication: HYPERTENSION
     Dosage: 120 MG BID, ORAL, DF
     Route: 048
     Dates: start: 20081212, end: 20090112
  2. TILDIEM LA-DILTIAZEM HYDROCHLORIDE [Suspect]
     Indication: DRUG USE FOR UNKNOWN INDICATION
     Dosage: DF
  3. BENDROFLUMETHIAZIDE [Concomitant]
  4. ASPIRIN [Concomitant]

REACTIONS (7)
  - DRUG EFFECT DECREASED [None]
  - FEELING ABNORMAL [None]
  - HEADACHE [None]
  - LABILE BLOOD PRESSURE [None]
  - MALAISE [None]
  - NERVOUSNESS [None]
  - PRODUCT QUALITY ISSUE [None]
